FAERS Safety Report 4266784-0 (Version None)
Quarter: 2004Q1

REPORT INFORMATION
  Report Type: 
  Country: None (occurrence: None)
  Receive Date: 20040108
  Receipt Date: 20030616
  Transmission Date: 20041129
  Serious: No
  Sender: FDA-Public Use
  Company Number: US-BRISTOL-MYERS SQUIBB COMPANY-12303384

PATIENT
  Age: 74 Year
  Sex: Female

DRUGS (1)
  1. CARDIOLITE [Suspect]
     Dosage: DOSE VALUE:  31-34 MCI
     Dates: start: 20030613

REACTIONS (1)
  - RASH PRURITIC [None]
